FAERS Safety Report 8054083-0 (Version None)
Quarter: 2012Q1

REPORT INFORMATION
  Report Type: 
  Country: None (occurrence: None)
  Receive Date: 20120118
  Receipt Date: 20120113
  Transmission Date: 20120608
  Serious: Yes (Other)
  Sender: FDA-Public Use
  Company Number: JP-SANOFI-AVENTIS-200513555JP

PATIENT
  Age: 66 Year
  Sex: Female

DRUGS (2)
  1. GLYBURIDE [Suspect]
     Indication: DIABETES MELLITUS
     Dosage: DOSE AS USED: 1 TABLET DOSE UNIT: 2.5 MG
     Route: 048
     Dates: start: 20020701, end: 20020801
  2. ALL OTHER THERAPEUTIC PRODUCTS [Suspect]

REACTIONS (1)
  - INTERSTITIAL LUNG DISEASE [None]
